FAERS Safety Report 18219084 (Version 1)
Quarter: 2020Q3

REPORT INFORMATION
  Report Type: Spontaneous
  Country: US (occurrence: US)
  Receive Date: 20200901
  Receipt Date: 20200901
  Transmission Date: 20201103
  Serious: No
  Sender: FDA-Public Use
  Company Number: US-JOURNEY MEDICAL CORPORATION-2020JNY00002

PATIENT
  Sex: Male

DRUGS (1)
  1. XIMINO [Suspect]
     Active Substance: MINOCYCLINE HYDROCHLORIDE
     Dosage: 135 MG, 1X/DAY

REACTIONS (1)
  - Vomiting [Unknown]
